FAERS Safety Report 4814250-3 (Version None)
Quarter: 2005Q4

REPORT INFORMATION
  Report Type: 
  Country: None (occurrence: None)
  Receive Date: 20051028
  Receipt Date: 20050726
  Transmission Date: 20060501
  Serious: No
  Sender: FDA-Public Use
  Company Number: US-GLAXOSMITHKLINE-A0567733A

PATIENT
  Age: 55 Year
  Sex: Male

DRUGS (7)
  1. ADVAIR DISKUS 100/50 [Suspect]
     Indication: DRUG USE FOR UNKNOWN INDICATION
     Dosage: 1PUFF TWICE PER DAY
     Route: 055
  2. PEPCID [Concomitant]
  3. NASACORT [Concomitant]
  4. FLONASE [Concomitant]
  5. VITAMINS [Concomitant]
  6. CALCIUM SUPPLEMENT [Concomitant]
  7. ZYRTEC [Concomitant]

REACTIONS (2)
  - ANGER [None]
  - IMPATIENCE [None]
